FAERS Safety Report 9151122 (Version 1)
Quarter: 2013Q1

REPORT INFORMATION
  Report Type: Spontaneous
  Country: FR (occurrence: None)
  Receive Date: 20130201
  Receipt Date: 20130201
  Transmission Date: 20140127
  Serious: Yes (Life-Threatening)
  Sender: FDA-Public Use
  Company Number: 1583227

PATIENT
  Age: 3 Year
  Sex: Female

DRUGS (5)
  1. VINCRISTINE SULFATE [Suspect]
     Indication: PRODUCT USED FOR UNKNOWN INDICATION
     Dosage: .9 MG MILLIGRAM(S) (UNKNOWN) INTRAVENOUS (NOT OTHERWISE SPECIFIED)
     Route: 042
     Dates: start: 20121101, end: 20121122
  2. CERUBIDINE [Suspect]
     Indication: PRODUCT USED FOR UNKNOWN INDICATION
     Dosage: 18 MG (MILLIGRAM(S) (UNKNOWN) INTRAVENOUS (NOT OTHERWISE SPECIFIED)
     Route: 042
     Dates: start: 20121101, end: 20121122
  3. KIDROLASE [Suspect]
     Indication: PRODUCT USED FOR UNKNOWN INDICATION
     Dosage: 6040 UI (UNKNOWN) INTRAVENOUS (NOT OTHERWISE SPECIFIED)
     Route: 042
     Dates: start: 20121105, end: 20121122
  4. CYTARABINE [Concomitant]
     Indication: PRODUCT USED FOR UNKNOWN INDICATION
     Dosage: 30 MG MILLIGRAM(S) (UNKNOWN) INTRADISCAL (INTRASPINAL)
     Dates: start: 20121105, end: 20121119
  5. METHOTREXATE [Suspect]
     Indication: PRODUCT USED FOR UNKNOWN INDICATION
     Dosage: 12 MG MILLIGRAM(S) (UNKNOWN) INTRADISCAL (INTRASPINAL)
     Dates: start: 20121105, end: 20121119

REACTIONS (5)
  - Aplasia [None]
  - Encephalitis [None]
  - Neurotoxicity [None]
  - Thrombocytopenic purpura [None]
  - Sepsis [None]
